FAERS Safety Report 17021159 (Version 6)
Quarter: 2020Q2

REPORT INFORMATION
  Report Type: Spontaneous
  Country: US (occurrence: US)
  Receive Date: 20191112
  Receipt Date: 20200626
  Transmission Date: 20200713
  Serious: No
  Sender: FDA-Public Use
  Company Number: US-DSJP-DSU-2019-143675

PATIENT

DRUGS (2)
  1. NAPROXEN. [Concomitant]
     Active Substance: NAPROXEN
     Indication: PRODUCT USED FOR UNKNOWN INDICATION
     Dosage: 220 MG, BID PRN
     Route: 065
  2. TURALIO [Suspect]
     Active Substance: PEXIDARTINIB HYDROCHLORIDE
     Indication: SYNOVITIS
     Dosage: 200 MG, BID
     Route: 048
     Dates: start: 20191026

REACTIONS (7)
  - Paraesthesia [Recovered/Resolved]
  - Periorbital swelling [Recovered/Resolved]
  - Off label use [Not Recovered/Not Resolved]
  - Arthralgia [Recovering/Resolving]
  - Hair colour changes [Unknown]
  - Swelling [Recovering/Resolving]
  - Product dose omission [Unknown]

NARRATIVE: CASE EVENT DATE: 2019
